FAERS Safety Report 14556359 (Version 1)
Quarter: 2018Q1

REPORT INFORMATION
  Report Type: Spontaneous
  Country: US (occurrence: US)
  Receive Date: 20180217
  Receipt Date: 20180217
  Transmission Date: 20180509
  Serious: Yes (Hospitalization)
  Sender: FDA-Public Use
  Company Number: None

PATIENT
  Age: 65 Year
  Sex: Female

DRUGS (4)
  1. ELIQUIS [Concomitant]
     Active Substance: APIXABAN
  2. UCOM [Concomitant]
  3. GLEEVEC [Suspect]
     Active Substance: IMATINIB MESYLATE
     Indication: CHRONIC MYELOID LEUKAEMIA
     Dosage: 3 TABS (300MG) DAILY PO
     Route: 048
     Dates: start: 201712
  4. AZOTJRP [Concomitant]

REACTIONS (4)
  - Sinusitis [None]
  - Petechiae [None]
  - Platelet count decreased [None]
  - Contusion [None]

NARRATIVE: CASE EVENT DATE: 20180203
